FAERS Safety Report 13367311 (Version 2)
Quarter: 2017Q2

REPORT INFORMATION
  Report Type: Other
  Country: SE (occurrence: SE)
  Receive Date: 20170324
  Receipt Date: 20170404
  Transmission Date: 20170830
  Serious: Yes (Life-Threatening, Hospitalization, Other)
  Sender: FDA-Public Use
  Company Number: SE-ASTELLAS-2017US010146

PATIENT
  Age: 78 Year
  Sex: Male

DRUGS (5)
  1. PROGRAF [Suspect]
     Active Substance: TACROLIMUS\TACROLIMUS ANHYDROUS
     Indication: LIVER TRANSPLANT
     Route: 048
     Dates: start: 2014, end: 20160322
  2. METOPROLOL. [Concomitant]
     Active Substance: METOPROLOL
     Indication: PRODUCT USED FOR UNKNOWN INDICATION
     Dosage: 50 MG, UNKNOWN FREQ (FOR SEVERAL YEARS)
     Route: 065
     Dates: start: 2000
  3. TROMBYL [Concomitant]
     Active Substance: ASPIRIN
     Indication: PRODUCT USED FOR UNKNOWN INDICATION
     Dosage: 75 MG, UNKNOWN FREQ (FOR SEVERAL YEARS)
     Route: 065
     Dates: start: 2000
  4. ADVAGRAF [Suspect]
     Active Substance: TACROLIMUS
     Indication: LIVER TRANSPLANT
     Route: 048
     Dates: start: 20160501, end: 20170103
  5. LOSARTAN. [Concomitant]
     Active Substance: LOSARTAN
     Indication: PRODUCT USED FOR UNKNOWN INDICATION
     Dosage: 50 MG, UNKNOWN FREQ (FOR SEVERAL YEARS)
     Route: 065

REACTIONS (3)
  - Renal failure [Unknown]
  - Cardiac failure [Unknown]
  - Polyserositis [Recovered/Resolved with Sequelae]

NARRATIVE: CASE EVENT DATE: 201602
